FAERS Safety Report 7155941-1 (Version None)
Quarter: 2010Q4

REPORT INFORMATION
  Report Type: 
  Country: None (occurrence: None)
  Receive Date: 20101214
  Receipt Date: 20101201
  Transmission Date: 20110411
  Serious: Yes (Hospitalization, Other)
  Sender: FDA-Public Use
  Company Number: PHHY2010US82331

PATIENT
  Sex: Female
  Weight: 146 kg

DRUGS (12)
  1. RECLAST [Suspect]
     Dosage: UNK
     Dates: start: 20100924
  2. RANEXA [Concomitant]
     Dosage: 1000 MG, TID
  3. DEMADEX [Concomitant]
     Dosage: 100 MG, HALF TABLET QD
  4. CITRACAL + D [Concomitant]
     Dosage: 315MG-200, ONE TABLET QD
     Route: 048
  5. LIPITOR [Concomitant]
     Dosage: 20 MG, QD
     Route: 048
  6. TYLENOL (CAPLET) [Concomitant]
     Dosage: 325 MG, PM
  7. COREG [Concomitant]
     Dosage: 3.125 MG, BID
  8. NITRO-DUR [Concomitant]
     Dosage: 0.4 MG/HR, QD
  9. ASPIRIN [Concomitant]
     Dosage: 81 MG, QD
     Route: 048
  10. PROTONIX [Concomitant]
     Dosage: 40 MG, 1T, QD
     Route: 048
  11. COLCHICINE [Concomitant]
  12. NAPROXEN [Concomitant]

REACTIONS (15)
  - ASTHENIA [None]
  - BLOOD CREATINE INCREASED [None]
  - BLOOD CREATINE PHOSPHOKINASE DECREASED [None]
  - BLOOD UREA INCREASED [None]
  - CORONARY ARTERY DISEASE [None]
  - COSTOVERTEBRAL ANGLE TENDERNESS [None]
  - GLOMERULAR FILTRATION RATE DECREASED [None]
  - HYPERLIPIDAEMIA [None]
  - HYPERTENSION [None]
  - MALAISE [None]
  - OEDEMA [None]
  - OSTEOARTHRITIS [None]
  - RENAL FAILURE ACUTE [None]
  - SOLITARY KIDNEY [None]
  - VITAMIN B12 DEFICIENCY [None]
